FAERS Safety Report 9780904 (Version 2)
Quarter: 2014Q1

REPORT INFORMATION
  Report Type: Report from Study
  Country: CL (occurrence: CL)
  Receive Date: 20131224
  Receipt Date: 20140101
  Transmission Date: 20141002
  Serious: Yes (Other)
  Sender: FDA-Public Use
  Company Number: PHHY2013CL150999

PATIENT
  Age: 68 Year
  Sex: Female

DRUGS (2)
  1. TAREG [Suspect]
     Indication: HYPERTENSION
     Dosage: 80 MG, IN THE MORNING AND AT NIGHT
     Route: 048
  2. ASPIRIN [Concomitant]
     Dosage: 100 MG, DAILY
     Route: 048

REACTIONS (5)
  - Cataract [Not Recovered/Not Resolved]
  - Eye disorder [Unknown]
  - Visual impairment [Unknown]
  - Bone pain [Not Recovered/Not Resolved]
  - Muscle spasms [Not Recovered/Not Resolved]
